FAERS Safety Report 7365560-X (Version None)
Quarter: 2011Q1

REPORT INFORMATION
  Report Type: 
  Country: None (occurrence: None)
  Receive Date: 20110322
  Receipt Date: 20110304
  Transmission Date: 20110831
  Serious: Yes (Hospitalization)
  Sender: FDA-Public Use
  Company Number: US-BAYER-201036410NA

PATIENT
  Sex: Female
  Weight: 82.993 kg

DRUGS (3)
  1. DIAMOX [Concomitant]
     Indication: PAPILLOEDEMA
     Dosage: 250 MG, UNK
  2. EFFEXOR [Concomitant]
     Indication: ANXIETY
     Route: 048
  3. YASMIN [Suspect]
     Indication: CONTRACEPTION
     Dosage: UNK
     Dates: start: 20050722

REACTIONS (4)
  - INTRACRANIAL VENOUS SINUS THROMBOSIS [None]
  - BLINDNESS TRANSIENT [None]
  - CEREBRAL VENOUS THROMBOSIS [None]
  - HEADACHE [None]
